FAERS Safety Report 6460038-X (Version None)
Quarter: 2009Q4

REPORT INFORMATION
  Report Type: 
  Country: None (occurrence: None)
  Receive Date: 20091129
  Receipt Date: 20091119
  Transmission Date: 20100525
  Serious: Yes (Other)
  Sender: FDA-Public Use
  Company Number: PHHO2009FR14378

PATIENT
  Sex: Female

DRUGS (2)
  1. AFINITOR [Suspect]
     Indication: ENDOMETRIAL CANCER METASTATIC
     Dosage: UNK
     Dates: start: 20090707, end: 20090713
  2. NISISCO [Concomitant]

REACTIONS (5)
  - ASTHENIA [None]
  - COMPUTERISED TOMOGRAM ABNORMAL [None]
  - COUGH [None]
  - INTERSTITIAL LUNG DISEASE [None]
  - PYREXIA [None]
